FAERS Safety Report 24705230 (Version 1)
Quarter: 2024Q4

REPORT INFORMATION
  Report Type: Spontaneous
  Country: US (occurrence: None)
  Receive Date: 20241205
  Receipt Date: 20241205
  Transmission Date: 20250114
  Serious: Yes (Life-Threatening)
  Sender: Public
  Company Number: None

PATIENT
  Age: 37 Year
  Sex: Male
  Weight: 95 kg

DRUGS (1)
  1. PIPERACILLIN SODIUM\TAZOBACTAM SODIUM [Suspect]
     Active Substance: PIPERACILLIN SODIUM\TAZOBACTAM SODIUM
     Dosage: FREQUENCY : 4 TIMES A DAY;?
     Route: 042
     Dates: start: 20200103, end: 20200104

REACTIONS (5)
  - Anaphylactic reaction [None]
  - Angioedema [None]
  - Oedema peripheral [None]
  - Dry throat [None]
  - Throat irritation [None]

NARRATIVE: CASE EVENT DATE: 20200104
